FAERS Safety Report 9349339 (Version 2)
Quarter: 2013Q2

REPORT INFORMATION
  Report Type: Spontaneous
  Country: JP (occurrence: JP)
  Receive Date: 20130614
  Receipt Date: 20130620
  Transmission Date: 20140414
  Serious: Yes (Death, Other)
  Sender: FDA-Public Use
  Company Number: JP-OTSUKA-JP-2013-11687

PATIENT
  Age: 68 Year
  Sex: Female
  Weight: 45 kg

DRUGS (8)
  1. SAMSCA [Suspect]
     Indication: CARDIAC FAILURE CHRONIC
     Dosage: 15 MG MILLIGRAM(S), QD
     Route: 048
     Dates: start: 20130514, end: 20130514
  2. LASIX [Concomitant]
     Indication: CARDIAC FAILURE CHRONIC
     Dosage: 40 MG MILLIGRAM(S), QD
     Route: 048
     Dates: start: 20130403, end: 20130410
  3. LASIX [Concomitant]
     Dosage: 20 MG MILLIGRAM(S), QD
     Route: 048
     Dates: start: 20130411, end: 20130421
  4. LASIX [Concomitant]
     Indication: CARDIAC FAILURE CHRONIC
     Dosage: 5-6 AMPULES, DAILY DOSE
     Route: 042
     Dates: end: 20130513
  5. DOBUPUM [Concomitant]
     Indication: CARDIAC FAILURE CHRONIC
     Dosage: UNK
     Route: 042
     Dates: start: 20130402, end: 20130526
  6. RENIVACE [Concomitant]
     Indication: CARDIAC FAILURE CHRONIC
     Dosage: 2.5 MG MILLIGRAM(S), QD
     Route: 048
     Dates: start: 20130403, end: 20130516
  7. ALDACTONE A [Concomitant]
     Indication: CARDIAC FAILURE CHRONIC
     Dosage: 25 MG MILLIGRAM(S), QD
     Route: 048
     Dates: start: 20130405, end: 20130516
  8. DIART [Concomitant]
     Indication: CARDIAC FAILURE CHRONIC
     Dosage: 60 MG MILLIGRAM(S), QD
     Route: 048
     Dates: start: 20130421, end: 20130516

REACTIONS (4)
  - Cardiogenic shock [Fatal]
  - Ischaemic hepatitis [Fatal]
  - Hypernatraemia [Recovering/Resolving]
  - Rapid correction of hyponatraemia [Unknown]
